FAERS Safety Report 6305667-9 (Version None)
Quarter: 2009Q3

REPORT INFORMATION
  Report Type: 
  Country: None (occurrence: None)
  Receive Date: 20090807
  Receipt Date: 20090615
  Transmission Date: 20100115
  Serious: Yes (Other)
  Sender: FDA-Public Use
  Company Number: PAR_03040_2009

PATIENT
  Age: 23 Year
  Sex: Female

DRUGS (2)
  1. DOXYCYCLINE [Suspect]
     Indication: ACNE
     Dosage: 100 MG BID, ORAL
     Route: 048
  2. TRETINOIN [Concomitant]

REACTIONS (2)
  - BENIGN INTRACRANIAL HYPERTENSION [None]
  - VITH NERVE PARALYSIS [None]
